FAERS Safety Report 6446236-X (Version None)
Quarter: 2009Q4

REPORT INFORMATION
  Report Type: 
  Country: None (occurrence: None)
  Receive Date: 20091119
  Receipt Date: 20091111
  Transmission Date: 20100525
  Serious: Yes (Other)
  Sender: FDA-Public Use
  Company Number: US-ROCHE-668286

PATIENT
  Age: 43 Year
  Sex: Male
  Weight: 68 kg

DRUGS (2)
  1. TAMIFLU [Suspect]
     Dosage: OTHER INDICATION: FEVER
     Route: 048
     Dates: start: 20091105, end: 20091110
  2. TYLENOL (CAPLET) [Concomitant]
     Dates: start: 20091101

REACTIONS (4)
  - DYSPHAGIA [None]
  - SPEECH DISORDER [None]
  - SWOLLEN TONGUE [None]
  - THROAT IRRITATION [None]
